FAERS Safety Report 8956206 (Version 1)
Quarter: 2012Q4

REPORT INFORMATION
  Report Type: 
  Country: GR (occurrence: GR)
  Receive Date: 20121210
  Receipt Date: 20121210
  Transmission Date: 20130627
  Serious: Yes (Other)
  Sender: FDA-Public Use
  Company Number: PHHY2012GR112193

PATIENT
  Age: 35 Year
  Sex: Male

DRUGS (6)
  1. ISONIAZID [Suspect]
     Indication: TUBERCULOSIS
  2. ETHAMBUTOL [Suspect]
     Indication: TUBERCULOSIS
  3. RIFAMPICIN [Suspect]
     Indication: TUBERCULOSIS
  4. PYRAZINAMIDE [Suspect]
     Indication: TUBERCULOSIS
  5. ETANERCEPT [Suspect]
     Indication: PSORIATIC ARTHROPATHY
  6. MOXIFLOXACIN [Concomitant]

REACTIONS (5)
  - Immune reconstitution inflammatory syndrome [Recovering/Resolving]
  - Pyrexia [Recovering/Resolving]
  - Cough [Recovering/Resolving]
  - Night sweats [Recovering/Resolving]
  - Concomitant disease aggravated [Unknown]
